FAERS Safety Report 17037483 (Version 1)
Quarter: 2019Q4

REPORT INFORMATION
  Report Type: Report from Study
  Country: US (occurrence: US)
  Receive Date: 20191115
  Receipt Date: 20191115
  Transmission Date: 20200122
  Serious: Yes (Hospitalization, Other)
  Sender: FDA-Public Use
  Company Number: US-JNJFOC-20191023441

PATIENT
  Sex: Female

DRUGS (9)
  1. CALCIUM/VITAMIN D [Concomitant]
     Active Substance: CALCIUM\VITAMIN D
  2. VITAMIN B12 [Concomitant]
     Active Substance: CYANOCOBALAMIN
  3. VITAMIN D                          /07503901/ [Concomitant]
     Active Substance: VITAMIN D NOS
  4. GABAPENTIN. [Concomitant]
     Active Substance: GABAPENTIN
  5. ACYCLOVIR                          /00587301/ [Concomitant]
     Active Substance: ACYCLOVIR
  6. VITAMIN C [Concomitant]
     Active Substance: ASCORBIC ACID
  7. IMBRUVICA [Suspect]
     Active Substance: IBRUTINIB
     Indication: WALDENSTROM^S MACROGLOBULINAEMIA
     Dosage: 280 MG, QD
     Route: 048
     Dates: start: 20180207
  8. IMBRUVICA [Suspect]
     Active Substance: IBRUTINIB
     Dosage: 280 MG,QD
     Route: 048
     Dates: start: 20181215
  9. MAGNESIUM [Concomitant]
     Active Substance: MAGNESIUM

REACTIONS (7)
  - Varicose vein [Unknown]
  - Stress [Unknown]
  - Blood pressure decreased [Unknown]
  - Asthenia [Unknown]
  - Wound haemorrhage [Not Recovered/Not Resolved]
  - Somnolence [Unknown]
  - Loss of consciousness [Unknown]
